FAERS Safety Report 13119153 (Version 2)
Quarter: 2017Q1

REPORT INFORMATION
  Report Type: Spontaneous
  Country: US (occurrence: US)
  Receive Date: 20170116
  Receipt Date: 20170125
  Transmission Date: 20170428
  Serious: No
  Sender: FDA-Public Use
  Company Number: US-EMERGENT BIOSOLUTIONS-17BA00001SP

PATIENT
  Age: 42 Year
  Sex: Female
  Weight: 65.2 kg

DRUGS (4)
  1. BAT [Suspect]
     Active Substance: EQUINE BOTULINUM NEUROTOXIN A/B/C/D/E/F/G IMMUNE FAB2
     Dosage: 18 ML, SINGLE
     Route: 042
     Dates: start: 20170103, end: 20170104
  2. IMMUNOGLOBULIN HUMAN NORMAL [Concomitant]
     Active Substance: HUMAN IMMUNOGLOBULIN G
     Dosage: 20 UNK, UNK
     Route: 042
     Dates: start: 20170109, end: 20170111
  3. BENADRYL [Concomitant]
     Active Substance: DIPHENHYDRAMINE HYDROCHLORIDE
     Dosage: 12.5 MG, SINGLE
     Route: 042
     Dates: start: 20170103, end: 20170103
  4. IMMUNOGLOBULIN HUMAN NORMAL [Concomitant]
     Active Substance: HUMAN IMMUNOGLOBULIN G
     Indication: GUILLAIN-BARRE SYNDROME
     Dosage: 20 G, QD
     Route: 042
     Dates: start: 20170103, end: 20170107

REACTIONS (1)
  - Bradycardia [Recovered/Resolved]

NARRATIVE: CASE EVENT DATE: 20170104
